FAERS Safety Report 23400589 (Version 2)
Quarter: 2024Q1

REPORT INFORMATION
  Report Type: Spontaneous
  Country: CY (occurrence: CY)
  Receive Date: 20240115
  Receipt Date: 20240317
  Transmission Date: 20240409
  Serious: Yes (Death, Hospitalization, Other)
  Sender: FDA-Public Use
  Company Number: CY-BoehringerIngelheim-2024-BI-002041

PATIENT
  Age: 70 Year
  Sex: Male

DRUGS (1)
  1. PRADAXA [Suspect]
     Active Substance: DABIGATRAN ETEXILATE MESYLATE
     Indication: Atrial fibrillation
     Dosage: FORM STRENGTH: 150 MILLIGRAM

REACTIONS (7)
  - Shock haemorrhagic [Fatal]
  - Hypovolaemic shock [Fatal]
  - Sepsis [Fatal]
  - Pneumonia [Fatal]
  - Haemoptysis [Unknown]
  - Pulmonary haemorrhage [Unknown]
  - Haemolytic anaemia [Unknown]

NARRATIVE: CASE EVENT DATE: 20231221
